FAERS Safety Report 6749458-3 (Version None)
Quarter: 2010Q2

REPORT INFORMATION
  Report Type: 
  Country: None (occurrence: None)
  Receive Date: 20100601
  Receipt Date: 20100517
  Transmission Date: 20101027
  Serious: Yes (Other)
  Sender: FDA-Public Use
  Company Number: US-PFIZER INC-2010064852

PATIENT
  Age: 52 Year
  Sex: Male

DRUGS (17)
  1. NELFINAVIR MESYLATE [Suspect]
     Route: 065
  2. ZIDOVUDINE [Suspect]
     Dosage: UNK
     Route: 065
  3. STAVUDINE [Suspect]
     Dosage: UNK
     Route: 065
  4. NEVIRAPINE [Suspect]
     Route: 065
  5. DELAVIRDINE MESYLATE [Suspect]
     Dosage: UNK
     Route: 065
  6. SAQUINAVIR [Suspect]
     Dosage: UNK
     Route: 065
  7. EFAVIRENZ [Suspect]
     Dosage: UNK
     Route: 048
  8. DIDANOSINE [Suspect]
     Dosage: UNK
     Route: 065
  9. INDINAVIR SULFATE [Suspect]
     Dosage: UNK
     Route: 048
  10. LAMIVUDINE [Suspect]
     Dosage: UNK
     Route: 065
  11. TENOFOVIR DISOPROXIL FUMARATE [Suspect]
     Dosage: UNK
     Route: 065
  12. ABACAVIR SULFATE [Suspect]
     Route: 065
  13. ETRAVIRINE [Suspect]
     Dosage: UNK
     Route: 065
  14. RALTEGRAVIR [Suspect]
     Dosage: 1 DF, UNK
     Route: 048
  15. LOPINAVIR [Suspect]
     Dosage: UNK
     Route: 065
  16. DARUNAVIR [Suspect]
     Dosage: UNK
     Route: 065
  17. RITONAVIR [Suspect]
     Dosage: UNK
     Route: 065

REACTIONS (5)
  - DIPLOPIA [None]
  - EYELID PTOSIS [None]
  - LIPODYSTROPHY ACQUIRED [None]
  - MITOCHONDRIAL TOXICITY [None]
  - PROGRESSIVE EXTERNAL OPHTHALMOPLEGIA [None]
